FAERS Safety Report 23386508 (Version 3)
Quarter: 2024Q1

REPORT INFORMATION
  Report Type: Spontaneous
  Country: US (occurrence: US)
  Receive Date: 20240110
  Receipt Date: 20240208
  Transmission Date: 20240410
  Serious: No
  Sender: FDA-Public Use
  Company Number: US-SA-2023SA301031

PATIENT
  Age: 77 Year
  Sex: Female
  Weight: 68.49 kg

DRUGS (15)
  1. DUPIXENT [Suspect]
     Active Substance: DUPILUMAB
     Indication: Dermatitis atopic
     Dosage: 300 MG, QOW
     Route: 058
     Dates: start: 20230616
  2. DULOXETINE HYDROCHLORIDE [Concomitant]
     Active Substance: DULOXETINE HYDROCHLORIDE
     Dosage: UNK
  3. TROSPIUM CHLORIDE GLENMARK [Concomitant]
     Dosage: UNK
  4. MYRBETRIQ [Concomitant]
     Active Substance: MIRABEGRON
     Dosage: UNK UNK, QD; 50 MG TAB ER 24H
  5. HYDROCHLOROTHIAZIDE [Concomitant]
     Active Substance: HYDROCHLOROTHIAZIDE
     Dosage: UNK; 25 MG TABLET
  6. LISINOPRIL [Concomitant]
     Active Substance: LISINOPRIL
     Dosage: UNK
  7. METHENAMINE HIPPURATE [Concomitant]
     Active Substance: METHENAMINE HIPPURATE
     Dosage: UNK
  8. D-MANNOSE [Concomitant]
     Dosage: UNK
  9. HYDROXYZINE HYDROCHLORIDE [Concomitant]
     Active Substance: HYDROXYZINE HYDROCHLORIDE
     Dosage: UNK
  10. OMEPRAZOLE [Concomitant]
     Active Substance: OMEPRAZOLE
     Dosage: UNK
  11. CYCLOBENZAPRINE HYDROCHLORIDE [Concomitant]
     Active Substance: CYCLOBENZAPRINE HYDROCHLORIDE
     Dosage: UNK
  12. TRAMADOL HCL [Concomitant]
     Active Substance: TRAMADOL HYDROCHLORIDE
     Dosage: UNK
  13. CYCLOBENZAPRINE [Concomitant]
     Active Substance: CYCLOBENZAPRINE
  14. BUDESONIDE [Concomitant]
     Active Substance: BUDESONIDE
  15. CRANBERRY [Concomitant]
     Active Substance: CRANBERRY

REACTIONS (11)
  - Ear pain [Unknown]
  - Bronchitis [Recovering/Resolving]
  - Weight decreased [Unknown]
  - Abdominal pain [Unknown]
  - Joint injury [Unknown]
  - Condition aggravated [Unknown]
  - Gait disturbance [Unknown]
  - Back pain [Unknown]
  - Sinusitis [Recovered/Resolved]
  - Pruritus [Unknown]
  - Injection site pain [Recovered/Resolved]

NARRATIVE: CASE EVENT DATE: 20230601
